FAERS Safety Report 4497449-8 (Version None)
Quarter: 2004Q4

REPORT INFORMATION
  Report Type: 
  Country: None (occurrence: None)
  Receive Date: 20041110
  Receipt Date: 20041015
  Transmission Date: 20050328
  Serious: Yes (Disabling)
  Sender: FDA-Public Use
  Company Number: DE-MERCK-0410DEU00509

PATIENT
  Age: 83 Year
  Sex: Male

DRUGS (10)
  1. VIOXX [Suspect]
     Indication: MUSCULOSKELETAL PAIN
     Route: 048
     Dates: start: 20030825, end: 20041001
  2. FALITHROM [Concomitant]
     Indication: PULMONARY EMBOLISM
     Route: 065
  3. MOLSIDOMINE [Concomitant]
     Route: 065
  4. HYDROCHLOROTHIAZIDE AND RAMIPRIL [Concomitant]
     Route: 065
  5. ISOSORBIDE MONONITRATE [Concomitant]
     Route: 065
  6. NEBILET [Concomitant]
     Route: 065
  7. ARELIX ACE [Concomitant]
     Route: 065
  8. SODIUM MONOFLUOROPHOSPHATE [Concomitant]
     Route: 065
  9. CALCIUM GLUCONATE [Concomitant]
     Route: 065
  10. CALCIUM CARBONATE [Concomitant]
     Route: 065

REACTIONS (1)
  - RETINAL VEIN OCCLUSION [None]
